FAERS Safety Report 7069220-4 (Version None)
Quarter: 2010Q4

REPORT INFORMATION
  Report Type: 
  Country: None (occurrence: None)
  Receive Date: 20101028
  Receipt Date: 20101020
  Transmission Date: 20110411
  Serious: Yes (Other)
  Sender: FDA-Public Use
  Company Number: B0681652A

PATIENT
  Age: 24 Year
  Sex: Male

DRUGS (2)
  1. AMOXICILLIN [Suspect]
  2. ANESTHESIA [Concomitant]
     Indication: SURGERY
     Route: 065

REACTIONS (2)
  - ANAPHYLACTIC SHOCK [None]
  - DRUG HYPERSENSITIVITY [None]
